FAERS Safety Report 5165987-0 (Version None)
Quarter: 2006Q4

REPORT INFORMATION
  Report Type: 
  Country: None (occurrence: None)
  Receive Date: 20061128
  Receipt Date: 20061106
  Transmission Date: 20070319
  Serious: Yes (Hospitalization)
  Sender: FDA-Public Use
  Company Number: M-06-0904

PATIENT
  Age: 61 Year
  Sex: Female

DRUGS (4)
  1. PACERONE [Suspect]
     Dosage: 200 MG, QD, PO
     Route: 048
  2. METOPROLOL SUCCINATE [Concomitant]
  3. ASPIRIN [Concomitant]
  4. LASIX [Concomitant]

REACTIONS (30)
  - ALOPECIA [None]
  - ARTHRALGIA [None]
  - ASTHENIA [None]
  - BLOOD PRESSURE INCREASED [None]
  - BLOOD THYROID STIMULATING HORMONE INCREASED [None]
  - CHEST DISCOMFORT [None]
  - CHEST PAIN [None]
  - COLD SWEAT [None]
  - CONSTIPATION [None]
  - COORDINATION ABNORMAL [None]
  - COUGH [None]
  - DRY EYE [None]
  - DYSGEUSIA [None]
  - FATIGUE [None]
  - FEELING COLD [None]
  - FLUSHING [None]
  - HAEMORRHOIDAL HAEMORRHAGE [None]
  - HALO VISION [None]
  - HYPOAESTHESIA [None]
  - INSOMNIA [None]
  - MUSCULAR WEAKNESS [None]
  - NAUSEA [None]
  - NERVOUSNESS [None]
  - PALPITATIONS [None]
  - PARAESTHESIA [None]
  - PHARYNGOLARYNGEAL PAIN [None]
  - RESTLESSNESS [None]
  - THYROID DISORDER [None]
  - TREMOR [None]
  - WHEEZING [None]
